FAERS Safety Report 4748812-9 (Version None)
Quarter: 2005Q3

REPORT INFORMATION
  Report Type: 
  Country: None (occurrence: None)
  Receive Date: 20050812
  Receipt Date: 20050708
  Transmission Date: 20060218
  Serious: Yes (Other)
  Sender: FDA-Public Use
  Company Number: 410435

PATIENT
  Age: 36 Year
  Sex: Female

DRUGS (2)
  1. PEGASYS [Suspect]
     Dosage: SUBCUTANEOUS
     Route: 058
     Dates: start: 20050419
  2. COPEGUS [Suspect]
     Dosage: ORAL
     Route: 048
     Dates: start: 20050419

REACTIONS (1)
  - WHITE BLOOD CELL COUNT DECREASED [None]
